FAERS Safety Report 7282459-8 (Version None)
Quarter: 2011Q1

REPORT INFORMATION
  Report Type: 
  Country: None (occurrence: None)
  Receive Date: 20110209
  Receipt Date: 20110128
  Transmission Date: 20110831
  Serious: Yes (Hospitalization)
  Sender: FDA-Public Use
  Company Number: US-JNJFOC-20101003293

PATIENT
  Sex: Female
  Weight: 51.2 kg

DRUGS (4)
  1. ANTIBIOTICS [Suspect]
     Indication: INFLAMMATORY BOWEL DISEASE
     Route: 065
  2. AZATHIOPRINE [Concomitant]
     Route: 065
  3. REMICADE [Suspect]
     Indication: INFLAMMATORY BOWEL DISEASE
     Route: 042
  4. MESALAMINE [Suspect]
     Indication: PRODUCT USED FOR UNKNOWN INDICATION
     Route: 048

REACTIONS (2)
  - VOMITING [None]
  - NAUSEA [None]
